FAERS Safety Report 9003521 (Version 1)
Quarter: 2013Q1

REPORT INFORMATION
  Report Type: Spontaneous
  Country: US (occurrence: US)
  Receive Date: 20130108
  Receipt Date: 20130108
  Transmission Date: 20140127
  Serious: Yes (Death)
  Sender: FDA-Public Use
  Company Number: US-PFIZER INC-2013007435

PATIENT
  Age: 57 Year
  Sex: Female

DRUGS (4)
  1. AMLODIPINE BESILATE [Suspect]
  2. CLONAZEPAM [Suspect]
  3. TRAZODONE [Suspect]
  4. LAMOTRIGINE [Suspect]

REACTIONS (1)
  - Completed suicide [Fatal]
